FAERS Safety Report 15030152 (Version 2)
Quarter: 2018Q4

REPORT INFORMATION
  Report Type: Report from Study
  Country: US (occurrence: US)
  Receive Date: 20180619
  Receipt Date: 20181210
  Transmission Date: 20190204
  Serious: Yes (Death, Hospitalization, Other)
  Sender: FDA-Public Use
  Company Number: US-SHIRE-US201821752

PATIENT
  Age: 71 Year
  Sex: Male

DRUGS (2)
  1. HUMAN NORMAL IMMUNOGLOBULIN [Suspect]
     Active Substance: HUMAN IMMUNOGLOBULIN G
     Indication: PRIMARY IMMUNODEFICIENCY SYNDROME
     Dosage: UNK
     Route: 065
  2. HUMAN NORMAL IMMUNOGLOBULIN [Suspect]
     Active Substance: HUMAN IMMUNOGLOBULIN G
     Dosage: UNK, 3X A WEEK
     Route: 065

REACTIONS (6)
  - Death [Fatal]
  - Localised infection [Unknown]
  - Dyspnoea [Unknown]
  - Sciatica [Unknown]
  - Pseudomonas infection [Unknown]
  - Sepsis [Unknown]

NARRATIVE: CASE EVENT DATE: 201806
